FAERS Safety Report 6185148-6 (Version None)
Quarter: 2009Q2

REPORT INFORMATION
  Report Type: 
  Country: None (occurrence: None)
  Receive Date: 20090511
  Receipt Date: 20090423
  Transmission Date: 20091009
  Serious: Yes (Other)
  Sender: FDA-Public Use
  Company Number: GB-PFIZER INC-2009188550

PATIENT
  Age: 63 Year

DRUGS (1)
  1. AROMASIN [Suspect]
     Dosage: 25 MG, 1X/DAY
     Route: 048
     Dates: start: 20080901

REACTIONS (3)
  - BLOOD ALKALINE PHOSPHATASE INCREASED [None]
  - GAMMA-GLUTAMYLTRANSFERASE INCREASED [None]
  - LIVER FUNCTION TEST ABNORMAL [None]
